FAERS Safety Report 22717096 (Version 6)
Quarter: 2025Q1

REPORT INFORMATION
  Report Type: Report from Study
  Country: CA (occurrence: CA)
  Receive Date: 20230718
  Receipt Date: 20250226
  Transmission Date: 20250409
  Serious: Yes (Hospitalization)
  Sender: ABBVIE
  Company Number: CA-ABBVIE-5330108

PATIENT
  Age: 69 Year
  Sex: Male

DRUGS (43)
  1. VENETOCLAX [Suspect]
     Active Substance: VENETOCLAX
     Indication: Acute myeloid leukaemia
     Route: 048
     Dates: start: 20230412, end: 20230418
  2. NICOTINE [Concomitant]
     Active Substance: NICOTINE
     Indication: Ex-tobacco user
     Dosage: PATCH
     Route: 061
     Dates: start: 20230330
  3. NICORETTE [Concomitant]
     Active Substance: NICOTINE
     Indication: Ex-tobacco user
     Route: 048
     Dates: start: 20230404
  4. METOPROLOL [Concomitant]
     Active Substance: METOPROLOL
     Indication: Hypertension
     Route: 048
     Dates: start: 2010
  5. METFORMIN [Concomitant]
     Active Substance: METFORMIN HYDROCHLORIDE
     Indication: Diabetes mellitus
     Route: 048
     Dates: start: 20230330
  6. MELATONIN [Concomitant]
     Active Substance: MELATONIN
     Indication: Insomnia
     Route: 048
     Dates: start: 20230406
  7. LOPRESSOR [Concomitant]
     Active Substance: METOPROLOL TARTRATE
     Indication: Hypertension
     Route: 048
     Dates: start: 20230522, end: 20230610
  8. LASIX [Concomitant]
     Active Substance: FUROSEMIDE
     Indication: Anaemia
     Route: 042
     Dates: start: 20230329, end: 20230329
  9. LASIX [Concomitant]
     Active Substance: FUROSEMIDE
     Indication: Anaemia
     Route: 042
     Dates: start: 20230331, end: 20230331
  10. LASIX [Concomitant]
     Active Substance: FUROSEMIDE
     Indication: Anaemia
     Route: 042
     Dates: start: 20230401, end: 20230402
  11. K-DUR [Concomitant]
     Active Substance: POTASSIUM CHLORIDE
     Indication: Hypokalaemia
     Route: 048
     Dates: start: 20230329, end: 20230330
  12. K-DUR [Concomitant]
     Active Substance: POTASSIUM CHLORIDE
     Indication: Hypokalaemia
     Dates: start: 20230405, end: 20230407
  13. JARDIANCE [Concomitant]
     Active Substance: EMPAGLIFLOZIN
     Indication: Diabetes mellitus
     Route: 048
     Dates: start: 2010, end: 20230328
  14. JARDIANCE [Concomitant]
     Active Substance: EMPAGLIFLOZIN
     Indication: Diabetes mellitus
     Route: 048
     Dates: start: 20230413
  15. INSULIN NOS [Concomitant]
     Active Substance: INSULIN NOS
     Indication: Diabetes mellitus
     Dates: start: 20230329, end: 20230418
  16. FILGRASTIM [Concomitant]
     Active Substance: FILGRASTIM
     Indication: Neutrophil count decreased
     Dates: start: 20230515
  17. FRAGMIN [Concomitant]
     Active Substance: DALTEPARIN SODIUM
     Indication: Thrombosis prophylaxis
     Route: 058
     Dates: start: 20230329, end: 20230418
  18. EMPAGLIFLOZIN [Concomitant]
     Active Substance: EMPAGLIFLOZIN
     Indication: Diabetes mellitus
     Route: 048
     Dates: start: 20230328
  19. TOBRAMYCIN [Concomitant]
     Active Substance: TOBRAMYCIN
     Indication: Sepsis
     Route: 042
     Dates: start: 20230513, end: 20230513
  20. THIAMINE [Concomitant]
     Active Substance: THIAMINE
     Indication: Nutritional supplementation
     Dates: start: 20230330, end: 20230401
  21. THIAMINE [Concomitant]
     Active Substance: THIAMINE
     Indication: Nutritional supplementation
     Route: 048
     Dates: start: 20230402
  22. PIPERACILLIN SODIUM\TAZOBACTAM SODIUM [Concomitant]
     Active Substance: PIPERACILLIN SODIUM\TAZOBACTAM SODIUM
     Indication: Sepsis
     Route: 042
     Dates: start: 20230513
  23. ROSUVASTATIN [Concomitant]
     Active Substance: ROSUVASTATIN
     Indication: Blood cholesterol increased
     Route: 048
     Dates: start: 20230620
  24. PERINDOPRIL ERBUMINE [Concomitant]
     Active Substance: PERINDOPRIL ERBUMINE
     Indication: Hypertension
     Route: 048
     Dates: start: 2010
  25. ATORVASTATIN [Concomitant]
     Active Substance: ATORVASTATIN
     Indication: Blood cholesterol increased
     Route: 048
     Dates: start: 2010, end: 20230328
  26. ATIVAN [Concomitant]
     Active Substance: LORAZEPAM
     Indication: Insomnia
     Route: 048
     Dates: start: 20230330
  27. ASPIRIN [Concomitant]
     Active Substance: ASPIRIN
     Indication: Thrombosis prophylaxis
     Dates: start: 2010, end: 20230418
  28. AMIODARONE [Concomitant]
     Active Substance: AMIODARONE
     Indication: Atrial flutter
     Route: 042
     Dates: start: 20230530, end: 20230530
  29. AMIODARONE [Concomitant]
     Active Substance: AMIODARONE
     Indication: Atrial flutter
     Dates: start: 20230530, end: 20230530
  30. AMIODARONE [Concomitant]
     Active Substance: AMIODARONE
     Indication: Atrial flutter
     Route: 042
     Dates: start: 20230531, end: 20230531
  31. ALLOPURINOL [Concomitant]
     Active Substance: ALLOPURINOL
     Indication: Prophylaxis
     Route: 048
     Dates: start: 20230329
  32. ALDACTONE [Concomitant]
     Active Substance: SPIRONOLACTONE
     Indication: Generalised oedema
     Route: 048
     Dates: start: 20230428, end: 20230501
  33. ALDACTONE [Concomitant]
     Active Substance: SPIRONOLACTONE
     Indication: Generalised oedema
     Route: 048
     Dates: start: 20230502, end: 20230523
  34. ALDACTONE [Concomitant]
     Active Substance: SPIRONOLACTONE
     Indication: Generalised oedema
     Dates: start: 20230524
  35. ZAROXOLYN [Concomitant]
     Active Substance: METOLAZONE
     Indication: Generalised oedema
     Dates: start: 20230525, end: 20230525
  36. VANCOMYCIN [Concomitant]
     Active Substance: VANCOMYCIN
     Indication: Sepsis
     Route: 042
     Dates: start: 20230513, end: 20230513
  37. VANCOMYCIN HYDROCHLORIDE [Concomitant]
     Active Substance: VANCOMYCIN HYDROCHLORIDE
     Indication: Sepsis
     Route: 042
     Dates: start: 20230513, end: 20230513
  38. CRESTOR [Concomitant]
     Active Substance: ROSUVASTATIN CALCIUM
     Indication: Blood cholesterol increased
     Route: 048
     Dates: start: 20230422
  39. AZACITIDINE [Suspect]
     Active Substance: AZACITIDINE
     Indication: Acute myeloid leukaemia
     Route: 065
     Dates: start: 20230412
  40. DIAMICRON [Concomitant]
     Indication: Diabetes mellitus
     Route: 048
     Dates: start: 20230331
  41. COVID-19 vaccine mRNA [Concomitant]
     Indication: COVID-19 immunisation
     Route: 030
  42. CIPROFLOXACIN [Concomitant]
     Active Substance: CIPROFLOXACIN
     Indication: Sepsis
     Route: 048
     Dates: start: 20230519, end: 20230619
  43. CIPROFLOXACIN [Concomitant]
     Active Substance: CIPROFLOXACIN
     Indication: Sepsis
     Route: 048
     Dates: start: 20230623, end: 20230629

REACTIONS (1)
  - Acute kidney injury [Recovered/Resolved]

NARRATIVE: CASE EVENT DATE: 20230514
